FAERS Safety Report 10738174 (Version 1)
Quarter: 2015Q1

REPORT INFORMATION
  Report Type: Spontaneous
  Country: US (occurrence: None)
  Receive Date: 20150122
  Receipt Date: 20150122
  Transmission Date: 20150721
  Serious: No
  Sender: FDA-Public Use
  Company Number: None

PATIENT
  Age: 62 Year
  Sex: Female

DRUGS (10)
  1. PREMPRO [Concomitant]
     Active Substance: ESTROGENS, CONJUGATED\MEDROXYPROGESTERONE ACETATE
  2. VITAMIN D [Concomitant]
     Active Substance: CHOLECALCIFEROL
  3. BUT/ACETAMINOPHEN/CAFF 50-300-40 CP ACTAVIS [Suspect]
     Active Substance: ACETAMINOPHEN\BUTABARBITAL\CAFFEINE
     Indication: MIGRAINE
     Dosage: 50-300-40?1 CAP 3X DAILY PRN?ORALLY
     Route: 048
     Dates: start: 20141124
  4. SYNTHROID [Concomitant]
     Active Substance: LEVOTHYROXINE SODIUM
  5. CORGARD [Concomitant]
     Active Substance: NADOLOL
  6. OMEGA 3 [Concomitant]
     Active Substance: OMEGA-3 FATTY ACIDS
  7. SYTRINOL [Concomitant]
  8. TEKURNA [Concomitant]
  9. BABY ASA [Concomitant]
     Active Substance: ASPIRIN
  10. MALTAKE MUSCHROOMS [Concomitant]

REACTIONS (5)
  - Product quality issue [None]
  - Product substitution issue [None]
  - Drug ineffective [None]
  - Product formulation issue [None]
  - Drug dispensing error [None]

NARRATIVE: CASE EVENT DATE: 20141124
